FAERS Safety Report 6835698-1 (Version None)
Quarter: 2010Q3

REPORT INFORMATION
  Report Type: 
  Country: None (occurrence: None)
  Receive Date: 20100712
  Receipt Date: 20100712
  Transmission Date: 20110219
  Serious: Yes (Other)
  Sender: FDA-Public Use
  Company Number: None

PATIENT
  Age: 33 Year
  Sex: Female
  Weight: 58.9676 kg

DRUGS (1)
  1. FLUTICASONE PROPIONATE [Suspect]
     Indication: ALLERGY TO ANIMAL
     Dosage: 50 MCG 2 SPRAYS/DAY INHAL
     Route: 055
     Dates: start: 20100301, end: 20100515

REACTIONS (4)
  - DISCOMFORT [None]
  - EPISTAXIS [None]
  - PAIN [None]
  - SCAB [None]
